FAERS Safety Report 5248254-6 (Version None)
Quarter: 2007Q1

REPORT INFORMATION
  Report Type: 
  Country: None (occurrence: None)
  Receive Date: 20070227
  Receipt Date: 20060925
  Transmission Date: 20070707
  Serious: Yes (Other)
  Sender: FDA-Public Use
  Company Number: US-BRISTOL-MYERS SQUIBB COMPANY-13521984

PATIENT

DRUGS (1)
  1. GLUCOPHAGE [Suspect]
     Route: 048
     Dates: start: 20060905

REACTIONS (1)
  - OVERDOSE [None]
